FAERS Safety Report 25421134 (Version 1)
Quarter: 2025Q2

REPORT INFORMATION
  Report Type: Spontaneous
  Country: US (occurrence: US)
  Receive Date: 20250611
  Receipt Date: 20250611
  Transmission Date: 20250717
  Serious: No
  Sender: BRAEBURN PHARMACEUTICALS
  Company Number: US-BRAEBURN PHARMACEUTICALS-US-BRA-25-000406

PATIENT

DRUGS (3)
  1. BRIXADI [Suspect]
     Active Substance: BUPRENORPHINE
     Indication: Drug use disorder
     Dosage: 96 MILLIGRAM, MONTHLY
     Route: 058
     Dates: start: 20250127
  2. BRIXADI [Suspect]
     Active Substance: BUPRENORPHINE
     Indication: Drug dependence
     Dosage: 128 MILLIGRAM, MONTHLY
     Route: 058
     Dates: start: 20250221
  3. BRIXADI [Suspect]
     Active Substance: BUPRENORPHINE
     Dosage: 128 MILLIGRAM, MONTHLY
     Route: 058
     Dates: start: 20250320

REACTIONS (1)
  - Drug ineffective [Unknown]

NARRATIVE: CASE EVENT DATE: 20250101
